FAERS Safety Report 8901003 (Version 1)
Quarter: 2012Q4

REPORT INFORMATION
  Report Type: 
  Country: CA (occurrence: CA)
  Receive Date: 20121109
  Receipt Date: 20121109
  Transmission Date: 20130627
  Serious: Yes (Other)
  Sender: FDA-Public Use
  Company Number: CA-ELI_LILLY_AND_COMPANY-CA201210009995

PATIENT
  Age: 73 Year
  Sex: Male

DRUGS (1)
  1. HUMALOG LISPRO [Suspect]
     Dosage: UNK

REACTIONS (3)
  - Surgery [Unknown]
  - Neoplasm malignant [Unknown]
  - Memory impairment [Unknown]
